FAERS Safety Report 7623265-1 (Version None)
Quarter: 2011Q3

REPORT INFORMATION
  Report Type: 
  Country: None (occurrence: None)
  Receive Date: 20110712
  Receipt Date: 20110701
  Transmission Date: 20111222
  Serious: Yes (Other)
  Sender: FDA-Public Use
  Company Number: GB-GDP-11411010

PATIENT
  Age: 52 Year
  Sex: Male
  Weight: 76 kg

DRUGS (10)
  1. DOXYCYCLINE [Suspect]
     Indication: PRODUCT USED FOR UNKNOWN INDICATION
     Dosage: ORAL
     Route: 048
     Dates: start: 20110619
  2. BUDESONIDE [Concomitant]
  3. BECLOMETHASONE DIPROPIONATE [Concomitant]
  4. MOMETASONE FUROATE [Concomitant]
  5. DOUBLEBASE [Concomitant]
  6. TIMODINE [Concomitant]
  7. FLOXACILLIN SODIUM [Concomitant]
  8. FORMOTEROL FUMARATE [Concomitant]
  9. AMOXICILLIN [Concomitant]
  10. TERBUTALINE [Concomitant]

REACTIONS (1)
  - BALANITIS [None]
